FAERS Safety Report 7704366-6 (Version None)
Quarter: 2011Q3

REPORT INFORMATION
  Report Type: 
  Country: None (occurrence: None)
  Receive Date: 20110823
  Receipt Date: 20110816
  Transmission Date: 20111222
  Serious: Yes (Disabling)
  Sender: FDA-Public Use
  Company Number: FR-MERCK-1108FRA00064

PATIENT
  Age: 17 Year
  Sex: Female
  Weight: 54 kg

DRUGS (4)
  1. ISENTRESS [Suspect]
     Route: 048
     Dates: start: 20070101, end: 20110608
  2. DARUNAVIR [Concomitant]
     Route: 048
     Dates: start: 20070101
  3. RITONAVIR [Concomitant]
     Route: 048
     Dates: start: 20070101
  4. ETRAVIRINE [Suspect]
     Route: 048
     Dates: start: 20070101, end: 20110608

REACTIONS (2)
  - ARTHRALGIA [None]
  - OFF LABEL USE [None]
